FAERS Safety Report 8074399-1 (Version None)
Quarter: 2012Q1

REPORT INFORMATION
  Report Type: 
  Country: None (occurrence: None)
  Receive Date: 20120126
  Receipt Date: 20120125
  Transmission Date: 20120608
  Serious: Yes (Hospitalization)
  Sender: FDA-Public Use
  Company Number: US-GLAXOSMITHKLINE-A0963163A

PATIENT
  Age: 42 Year
  Sex: Female

DRUGS (3)
  1. LETAIRIS [Concomitant]
     Dosage: 5MG PER DAY
  2. REVATIO [Concomitant]
     Dosage: 40MG THREE TIMES PER DAY
  3. FLOLAN [Suspect]
     Indication: SYSTEMIC LUPUS ERYTHEMATOSUS
     Dosage: 20NGKM UNKNOWN
     Route: 042
     Dates: start: 20080919

REACTIONS (4)
  - DEVICE RELATED INFECTION [None]
  - LUNG DISORDER [None]
  - DYSPNOEA [None]
  - MEDICAL DEVICE COMPLICATION [None]
